FAERS Safety Report 5665111-1 (Version None)
Quarter: 2008Q1

REPORT INFORMATION
  Report Type: 
  Country: None (occurrence: None)
  Receive Date: 20080314
  Receipt Date: 20030823
  Transmission Date: 20080703
  Serious: Yes (Other)
  Sender: FDA-Public Use
  Company Number: US-ABBOTT-04P-163-0271359-00

PATIENT
  Sex: Female
  Weight: 61.29 kg

DRUGS (16)
  1. HUMIRA [Suspect]
     Indication: RHEUMATOID ARTHRITIS
     Route: 058
     Dates: start: 20030723, end: 20030910
  2. HUMIRA [Suspect]
     Route: 058
     Dates: start: 20030910, end: 20031231
  3. HUMIRA [Suspect]
     Route: 058
     Dates: start: 20040304, end: 20040318
  4. NAPROXEN [Concomitant]
     Indication: RHEUMATOID ARTHRITIS
     Route: 048
     Dates: start: 19850101, end: 20021201
  5. DIGOXIN [Concomitant]
     Indication: ARRHYTHMIA
     Route: 048
     Dates: start: 19920501
  6. PREDNISONE TAB [Concomitant]
     Indication: RHEUMATOID ARTHRITIS
     Route: 048
     Dates: start: 20010101, end: 20010201
  7. PLAQUENIL [Concomitant]
     Indication: RHEUMATOID ARTHRITIS
     Route: 048
     Dates: start: 20010101, end: 20010101
  8. MINOCYCLINE HCL [Concomitant]
     Indication: RHEUMATOID ARTHRITIS
     Route: 048
     Dates: start: 20010201
  9. AZULFIDINE EN-TABS [Concomitant]
     Indication: RHEUMATOID ARTHRITIS
     Route: 048
     Dates: start: 20010501, end: 20010501
  10. LOTENSIN [Concomitant]
     Indication: SYSTOLIC HYPERTENSION
     Route: 048
     Dates: start: 20010801
  11. ULTRACET [Concomitant]
     Indication: PAIN
     Route: 048
     Dates: start: 20011101
  12. METHOTREXATE [Concomitant]
     Indication: RHEUMATOID ARTHRITIS
     Route: 030
     Dates: start: 20020601, end: 20020701
  13. COLACE [Concomitant]
     Indication: CONSTIPATION
     Route: 048
     Dates: start: 20020301
  14. ARAVA [Concomitant]
     Indication: RHEUMATOID ARTHRITIS
     Route: 048
     Dates: start: 20020801
  15. NORTRIPTYLINE HCL [Concomitant]
     Indication: INSOMNIA
     Dosage: SPLIT DOSED OF 70MG/30MG
     Route: 048
     Dates: start: 20030301
  16. NORTRIPTYLINE HCL [Concomitant]
     Indication: PAIN
     Route: 048
     Dates: start: 20030301

REACTIONS (1)
  - HYPERLIPIDAEMIA [None]
